FAERS Safety Report 23094323 (Version 1)
Quarter: 2023Q4

REPORT INFORMATION
  Report Type: Spontaneous
  Country: US (occurrence: None)
  Receive Date: 20231023
  Receipt Date: 20231023
  Transmission Date: 20240110
  Serious: No
  Sender: FDA-Public Use
  Company Number: US-SUPERNUS Pharmaceuticals, Inc.-SUP202308-003382

PATIENT
  Age: 15 Year
  Sex: Male

DRUGS (4)
  1. QELBREE [Suspect]
     Active Substance: VILOXAZINE HYDROCHLORIDE
     Indication: Attention deficit hyperactivity disorder
     Dosage: 100MG
     Dates: start: 20230804
  2. QELBREE [Suspect]
     Active Substance: VILOXAZINE HYDROCHLORIDE
     Indication: Autism spectrum disorder
     Dosage: 200MG
     Dates: start: 20230821
  3. QELBREE [Suspect]
     Active Substance: VILOXAZINE HYDROCHLORIDE
     Dosage: 100MG
  4. Astarys [Concomitant]
     Dosage: EACH DF CONTAINS 39.2 MG-7.8 MG
     Route: 048

REACTIONS (2)
  - Erection increased [Recovered/Resolved]
  - Product use in unapproved indication [Unknown]
